FAERS Safety Report 7170791-8 (Version None)
Quarter: 2010Q4

REPORT INFORMATION
  Report Type: 
  Country: None (occurrence: None)
  Receive Date: 20101203
  Receipt Date: 20101124
  Transmission Date: 20110411
  Serious: Yes (Other)
  Sender: FDA-Public Use
  Company Number: 2010EU006242

PATIENT
  Sex: Female

DRUGS (1)
  1. SOLIFENACIN SUCCINATE (VESICARE) [Suspect]
     Indication: MICTURITION URGENCY
     Dosage: ORAL ; 5 MG, /D, ORAL
     Route: 048
     Dates: start: 20100201

REACTIONS (2)
  - HYPOAESTHESIA FACIAL [None]
  - VIITH NERVE PARALYSIS [None]
